FAERS Safety Report 8222921-4 (Version None)
Quarter: 2012Q1

REPORT INFORMATION
  Report Type: 
  Country: None (occurrence: None)
  Receive Date: 20120320
  Receipt Date: 20120315
  Transmission Date: 20120608
  Serious: Yes (Death)
  Sender: FDA-Public Use
  Company Number: RU-ASTRAZENECA-2012SE18280

PATIENT
  Age: 76 Year
  Sex: Female
  Weight: 105 kg

DRUGS (2)
  1. SYMBICORT [Suspect]
     Indication: ASTHMA
     Dosage: 160/4.5 MCG 1 INHALATION TWICE DAILY
     Route: 055
     Dates: start: 20100101, end: 20111201
  2. FORADIL COMBI [Suspect]
     Indication: ASTHMA
     Route: 065
     Dates: start: 20111201

REACTIONS (2)
  - ISCHAEMIC STROKE [None]
  - DERMATITIS [None]
